FAERS Safety Report 17655229 (Version 1)
Quarter: 2020Q2

REPORT INFORMATION
  Report Type: Spontaneous
  Country: US (occurrence: US)
  Receive Date: 20200409
  Receipt Date: 20200409
  Transmission Date: 20200713
  Serious: Yes (Hospitalization)
  Sender: FDA-Public Use
  Company Number: None

PATIENT
  Age: 63 Year
  Sex: Male
  Weight: 92.7 kg

DRUGS (15)
  1. LOSARTAN POTASSIUM 50MG [Concomitant]
     Active Substance: LOSARTAN POTASSIUM
  2. FUROSEMIDE 20MG [Concomitant]
     Active Substance: FUROSEMIDE
  3. CRESTOR [Concomitant]
     Active Substance: ROSUVASTATIN CALCIUM
  4. BISOPROLOL FUMARATE 5 MG [Concomitant]
     Active Substance: BISOPROLOL FUMARATE
  5. CAPECITABINE. [Suspect]
     Active Substance: CAPECITABINE
     Indication: COLON CANCER
     Route: 048
     Dates: start: 20200302
  6. GEMFIBROZIL 600MG [Concomitant]
     Active Substance: GEMFIBROZIL
  7. ASPIRIN ADULT LOW DOSE 81MG [Concomitant]
  8. KRILL OIL 300MG [Concomitant]
  9. SAW PALMETTO160MG [Concomitant]
  10. LANSOPRAZOLE 30MG [Concomitant]
     Active Substance: LANSOPRAZOLE
  11. CAPECITABINE. [Suspect]
     Active Substance: CAPECITABINE
     Indication: COLON CANCER
     Route: 048
     Dates: start: 20200302
  12. SYMBICORT 80-4.5 [Concomitant]
  13. POTASSIUM CHLORIDE ER 20MEQ [Concomitant]
  14. NIACIN FLUSH FREE 50MG [Concomitant]
  15. MELOXICAM 7.5MG [Concomitant]
     Active Substance: MELOXICAM

REACTIONS (1)
  - Sepsis [None]

NARRATIVE: CASE EVENT DATE: 20200329
